FAERS Safety Report 10641083 (Version 1)
Quarter: 2014Q4

REPORT INFORMATION
  Report Type: Spontaneous
  Country: FI (occurrence: FI)
  Receive Date: 20141209
  Receipt Date: 20141209
  Transmission Date: 20150529
  Serious: Yes (Hospitalization, Other)
  Sender: FDA-Public Use
  Company Number: FI-WATSON-2014-26120

PATIENT
  Age: 72 Year
  Sex: Male

DRUGS (2)
  1. NALTREXONE [Suspect]
     Active Substance: NALTREXONE
     Indication: MIOSIS
     Dosage: UNK
     Route: 065
  2. FENTANYL. [Suspect]
     Active Substance: FENTANYL
     Indication: ROTATOR CUFF SYNDROME
     Dosage: 75 ?G, Q1H
     Route: 062

REACTIONS (6)
  - Respiratory acidosis [Recovered/Resolved]
  - Loss of consciousness [Recovered/Resolved]
  - Impaired gastric emptying [Recovered/Resolved]
  - Unresponsive to stimuli [Recovered/Resolved]
  - Miosis [Recovered/Resolved]
  - Tremor [Recovered/Resolved]
